FAERS Safety Report 14205304 (Version 3)
Quarter: 2018Q1

REPORT INFORMATION
  Report Type: Report from Study
  Country: US (occurrence: US)
  Receive Date: 20171120
  Receipt Date: 20180309
  Transmission Date: 20180508
  Serious: Yes (Other)
  Sender: FDA-Public Use
  Company Number: US-PFIZER INC-2017426693

PATIENT
  Age: 76 Year
  Sex: Female

DRUGS (2)
  1. IBRANCE [Suspect]
     Active Substance: PALBOCICLIB
     Indication: BREAST CANCER METASTATIC
     Dosage: 125 MG, 1X/DAY
     Route: 048
     Dates: start: 20170911, end: 20171001
  2. IBRANCE [Suspect]
     Active Substance: PALBOCICLIB
     Dosage: 100 MG, 1X/DAY
     Route: 048
     Dates: start: 20171024

REACTIONS (8)
  - Anaemia [Recovered/Resolved]
  - Heart rate irregular [Unknown]
  - Dyspnoea [Recovered/Resolved]
  - Leukopenia [Recovered/Resolved]
  - Pulmonary oedema [Unknown]
  - Hypokalaemia [Unknown]
  - Dyspepsia [Unknown]
  - Fatigue [Recovered/Resolved]

NARRATIVE: CASE EVENT DATE: 2017
